FAERS Safety Report 20913289 (Version 1)
Quarter: 2022Q2

REPORT INFORMATION
  Report Type: Spontaneous
  Country: US (occurrence: None)
  Receive Date: 20220603
  Receipt Date: 20220603
  Transmission Date: 20220721
  Serious: No
  Sender: FDA-Public Use
  Company Number: None

PATIENT
  Age: 46 Year
  Weight: 82.55 kg

DRUGS (3)
  1. FLUPHENAZINE [Suspect]
     Active Substance: FLUPHENAZINE
  2. BENZTROPINE [Suspect]
     Active Substance: BENZTROPINE
  3. BUSPAR [Suspect]
     Active Substance: BUSPIRONE HYDROCHLORIDE

REACTIONS (3)
  - Tremor [None]
  - Arthritis [None]
  - Confusional state [None]
